FAERS Safety Report 25936509 (Version 2)
Quarter: 2025Q4

REPORT INFORMATION
  Report Type: Spontaneous
  Country: EU (occurrence: EU)
  Receive Date: 20251017
  Receipt Date: 20251112
  Transmission Date: 20260117
  Serious: Yes (Other)
  Sender: ALCON
  Company Number: EU-SANTEN OY-2025-SWE-009404

PATIENT

DRUGS (1)
  1. NETARSUDIL [Suspect]
     Active Substance: NETARSUDIL
     Indication: Product used for unknown indication
     Dosage: ONE DROP FOR THE EVENING
     Route: 047

REACTIONS (1)
  - Scleritis [Not Recovered/Not Resolved]
